FAERS Safety Report 17092807 (Version 1)
Quarter: 2019Q4

REPORT INFORMATION
  Report Type: Report from Study
  Country: None (occurrence: US)
  Receive Date: 20191129
  Receipt Date: 20191129
  Transmission Date: 20200122
  Serious: Yes (Other)
  Sender: FDA-Public Use
  Company Number: US-ABBVIE-19K-163-3172643-00

PATIENT
  Age: 45 Year
  Sex: Female

DRUGS (1)
  1. HUMIRA [Suspect]
     Active Substance: ADALIMUMAB
     Indication: PSORIATIC ARTHROPATHY
     Route: 058
     Dates: start: 20191004

REACTIONS (10)
  - Depressed mood [Unknown]
  - Back pain [Unknown]
  - Fall [Unknown]
  - Psoriasis [Recovered/Resolved]
  - Alopecia [Unknown]
  - Joint swelling [Unknown]
  - Anxiety [Recovered/Resolved]
  - Systemic lupus erythematosus [Unknown]
  - Swelling [Unknown]
  - Musculoskeletal discomfort [Unknown]

NARRATIVE: CASE EVENT DATE: 2019
